FAERS Safety Report 5613999-2 (Version None)
Quarter: 2008Q1

REPORT INFORMATION
  Report Type: 
  Country: None (occurrence: None)
  Receive Date: 20080205
  Receipt Date: 20080124
  Transmission Date: 20080703
  Serious: Yes (Hospitalization, Disabling)
  Sender: FDA-Public Use
  Company Number: DE-ROCHE-473620

PATIENT
  Age: 67 Year
  Sex: Female
  Weight: 52 kg

DRUGS (2)
  1. PEG-INTERFERON A-2A (RO 25-8310) [Suspect]
     Route: 058
     Dates: start: 20060531, end: 20061108
  2. RIBAVIRIN [Suspect]
     Route: 048
     Dates: start: 20060531, end: 20061108

REACTIONS (2)
  - PERIPHERAL SENSORIMOTOR NEUROPATHY [None]
  - VASCULITIS [None]
